FAERS Safety Report 5955923-9 (Version None)
Quarter: 2008Q4

REPORT INFORMATION
  Report Type: 
  Country: None (occurrence: None)
  Receive Date: 20081112
  Receipt Date: 20081031
  Transmission Date: 20090506
  Serious: No
  Sender: FDA-Public Use
  Company Number: US024966

PATIENT
  Sex: Female

DRUGS (3)
  1. FENTORA [Suspect]
     Indication: FIBROMYALGIA
     Dosage: BUCCAL
     Route: 002
  2. FENTORA [Suspect]
     Indication: SCOLIOSIS
     Dosage: BUCCAL
     Route: 002
  3. LORTAB [Concomitant]

REACTIONS (2)
  - DRUG PRESCRIBING ERROR [None]
  - MEDICATION ERROR [None]
